FAERS Safety Report 5128156-6 (Version None)
Quarter: 2006Q4

REPORT INFORMATION
  Report Type: 
  Country: None (occurrence: None)
  Receive Date: 20061011
  Receipt Date: 20060925
  Transmission Date: 20070319
  Serious: Yes (Other)
  Sender: FDA-Public Use
  Company Number: 8019269

PATIENT
  Age: 21 Year
  Sex: Male

DRUGS (3)
  1. PREDNISOLONE [Suspect]
     Indication: PRECURSOR T-LYMPHOBLASTIC LYMPHOMA/LEUKAEMIA
     Dates: start: 20040304, end: 20040418
  2. DEXAMETHASONE TAB [Concomitant]
  3. CHEMOTHERAPY [Concomitant]

REACTIONS (2)
  - HEPATIC STEATOSIS [None]
  - INSULIN RESISTANCE [None]
